FAERS Safety Report 16253036 (Version 1)
Quarter: 2019Q2

REPORT INFORMATION
  Report Type: Report from Study
  Country: None (occurrence: BR)
  Receive Date: 20190429
  Receipt Date: 20190429
  Transmission Date: 20190711
  Serious: Yes (Other)
  Sender: FDA-Public Use
  Company Number: BR-ABBVIE-19K-020-2759586-00

PATIENT
  Sex: Female

DRUGS (2)
  1. HUMIRA [Suspect]
     Active Substance: ADALIMUMAB
     Indication: RHEUMATOID ARTHRITIS
     Route: 058
     Dates: start: 20180424
  2. HUMIRA [Suspect]
     Active Substance: ADALIMUMAB
     Indication: RHEUMATOID ARTHRITIS
     Route: 058
     Dates: start: 20190415

REACTIONS (7)
  - Injection site pain [Unknown]
  - Loss of personal independence in daily activities [Unknown]
  - Gait inability [Unknown]
  - Drug ineffective [Unknown]
  - Pain [Unknown]
  - Therapeutic response shortened [Unknown]
  - Arthralgia [Unknown]

NARRATIVE: CASE EVENT DATE: 201904
